FAERS Safety Report 9592342 (Version 1)
Quarter: 2013Q4

REPORT INFORMATION
  Report Type: Report from Study
  Country: CA (occurrence: CA)
  Receive Date: 20131004
  Receipt Date: 20131004
  Transmission Date: 20140711
  Serious: Yes (Other)
  Sender: FDA-Public Use
  Company Number: CA-JNJFOC-20130915569

PATIENT
  Age: 72 Year
  Sex: Male
  Weight: 91.3 kg

DRUGS (6)
  1. REMICADE [Suspect]
     Indication: RHEUMATOID ARTHRITIS
     Route: 042
     Dates: start: 2004
  2. LOSEC [Concomitant]
     Route: 065
  3. FOLIC ACID [Concomitant]
     Route: 065
  4. ASA [Concomitant]
     Route: 065
  5. METHOTREXATE [Concomitant]
     Route: 065
  6. DOXYDYN [Concomitant]
     Route: 065

REACTIONS (2)
  - Chest pain [Recovered/Resolved]
  - Type 2 diabetes mellitus [Unknown]
